FAERS Safety Report 18431654 (Version 1)
Quarter: 2020Q4

REPORT INFORMATION
  Report Type: Spontaneous
  Country: US (occurrence: US)
  Receive Date: 20201027
  Receipt Date: 20201027
  Transmission Date: 20210114
  Serious: No
  Sender: FDA-Public Use
  Company Number: None

PATIENT
  Age: 51 Year
  Sex: Male

DRUGS (1)
  1. SODIUM FLUORIDE PRESCRIPTION DENTAL CREAM [Suspect]
     Active Substance: SODIUM FLUORIDE
     Indication: DRY MOUTH
     Route: 048
     Dates: start: 20200729, end: 20200801

REACTIONS (1)
  - Oral pain [None]

NARRATIVE: CASE EVENT DATE: 20200729
